FAERS Safety Report 24562239 (Version 1)
Quarter: 2024Q4

REPORT INFORMATION
  Report Type: Spontaneous
  Country: BR (occurrence: BR)
  Receive Date: 20241029
  Receipt Date: 20241029
  Transmission Date: 20250115
  Serious: Yes (Other)
  Sender: ORGANON
  Company Number: BR-ORGANON-O2410BRA002288

PATIENT
  Age: 18 Year
  Sex: Female

DRUGS (2)
  1. ETONOGESTREL [Suspect]
     Active Substance: ETONOGESTREL
     Indication: Contraception
     Dosage: 1 IMPLANT IN LEFT ARM
     Route: 059
     Dates: start: 20240919
  2. ETONOGESTREL [Suspect]
     Active Substance: ETONOGESTREL
     Indication: Hypertension

REACTIONS (14)
  - Syncope [Unknown]
  - Headache [Unknown]
  - Nausea [Unknown]
  - Heavy menstrual bleeding [Unknown]
  - Abdominal pain upper [Unknown]
  - Abdominal distension [Unknown]
  - Visual impairment [Unknown]
  - Pain in extremity [Unknown]
  - Pelvic pain [Unknown]
  - Limb discomfort [Unknown]
  - Implant site injury [Not Recovered/Not Resolved]
  - Device issue [Not Recovered/Not Resolved]
  - Product use in unapproved indication [Unknown]
  - Product prescribing issue [Unknown]

NARRATIVE: CASE EVENT DATE: 20240101
